FAERS Safety Report 5733820-1 (Version None)
Quarter: 2008Q2

REPORT INFORMATION
  Report Type: 
  Country: None (occurrence: None)
  Receive Date: 20080509
  Receipt Date: 20080428
  Transmission Date: 20081010
  Serious: Yes (Other)
  Sender: FDA-Public Use
  Company Number: US-ELI_LILLY_AND_COMPANY-US200804001266

PATIENT
  Sex: Female

DRUGS (8)
  1. BYETTA [Suspect]
     Indication: TYPE 2 DIABETES MELLITUS
     Dosage: 5 UG, 2/D
     Route: 058
     Dates: start: 20061001
  2. GLUCOPHAGE [Concomitant]
     Indication: TYPE 2 DIABETES MELLITUS
     Dosage: 1000 MG, 2/D
     Route: 048
     Dates: start: 19990101
  3. HYDROCHLOROTHIAZIDE [Concomitant]
     Indication: POLYURIA
     Dosage: 12.5 MG, QOD
     Route: 048
     Dates: start: 19990101
  4. LOVASTATIN [Concomitant]
     Indication: BLOOD CHOLESTEROL
     Dosage: 40 MG, DAILY (1/D)
     Route: 048
     Dates: start: 20040101
  5. SYNTHROID [Concomitant]
     Indication: HYPOTHYROIDISM
     Dosage: 0.112 UG, UNKNOWN
     Dates: start: 19700101
  6. SYNTHROID [Concomitant]
     Dosage: 0.112 UG, UNKNOWN
     Dates: start: 19840101
  7. BENICAR [Concomitant]
     Indication: HYPERTENSION
     Dosage: 10 MG, DAILY (1/D)
     Route: 048
     Dates: start: 20010101, end: 20071201
  8. MULTI-VITAMIN [Concomitant]
     Indication: GENERAL PHYSICAL CONDITION
     Dosage: UNK, DAILY (1/D)
     Route: 048

REACTIONS (3)
  - HYPOTENSION [None]
  - SYNCOPE [None]
  - WEIGHT DECREASED [None]
